FAERS Safety Report 10206500 (Version 1)
Quarter: 2014Q2

REPORT INFORMATION
  Report Type: Spontaneous
  Country: ZA (occurrence: ZA)
  Receive Date: 20140530
  Receipt Date: 20140530
  Transmission Date: 20141212
  Serious: Yes (Death)
  Sender: FDA-Public Use
  Company Number: ZA-BAYER-2014-076276

PATIENT
  Age: 72 Year
  Sex: Female

DRUGS (1)
  1. NEXAVAR 200 [Suspect]
     Indication: HEPATOCELLULAR CARCINOMA
     Dosage: 400 MG, BID
     Route: 048
     Dates: start: 20140303, end: 20140409

REACTIONS (3)
  - Oncologic complication [Fatal]
  - Skin toxicity [None]
  - Alopecia [None]
